FAERS Safety Report 6021404-X (Version None)
Quarter: 2008Q4

REPORT INFORMATION
  Report Type: 
  Country: None (occurrence: None)
  Receive Date: 20081229
  Receipt Date: 20081217
  Transmission Date: 20090506
  Serious: Yes (Hospitalization)
  Sender: FDA-Public Use
  Company Number: B0551518A

PATIENT
  Age: 75 Year
  Sex: Female

DRUGS (1)
  1. AMOXICILLIN + CLAVULANATE POTASSIUM [Suspect]
     Indication: OTITIS MEDIA
     Dosage: 2G TWICE PER DAY
     Route: 048
     Dates: start: 20081108, end: 20081108

REACTIONS (3)
  - CHEST DISCOMFORT [None]
  - DYSAESTHESIA [None]
  - HYPERHIDROSIS [None]
